FAERS Safety Report 8215623-1 (Version None)
Quarter: 2012Q1

REPORT INFORMATION
  Report Type: 
  Country: None (occurrence: None)
  Receive Date: 20120316
  Receipt Date: 20120305
  Transmission Date: 20120608
  Serious: Yes (Other)
  Sender: FDA-Public Use
  Company Number: US-ELI_LILLY_AND_COMPANY-US201201008124

PATIENT
  Sex: Female
  Weight: 93.878 kg

DRUGS (14)
  1. ALDACTONE [Concomitant]
     Dosage: 25 MG, QD
     Route: 048
  2. OXYGEN [Concomitant]
     Dosage: 4 DF, UNK
  3. XANAX [Concomitant]
     Indication: ANXIETY
     Dosage: 0.25 MG, PRN
     Route: 048
  4. ADCIRCA [Suspect]
     Dosage: 40 MG, QD
  5. LASIX [Concomitant]
     Dosage: 20 MG, QD
     Route: 048
  6. DELTASONE [Concomitant]
     Dosage: 5 MG, QD
     Route: 048
  7. ADCIRCA [Suspect]
     Dosage: 20 MG, QD
     Route: 048
     Dates: start: 20111003, end: 20111011
  8. METOPROLOL SUCCINATE [Concomitant]
     Dosage: 50 MG, UNK
  9. NEXIUM [Concomitant]
     Dosage: 40 MG, QD
     Route: 048
  10. SYNTHROID [Concomitant]
     Dosage: 88 UG, QD
     Route: 048
  11. LETAIRIS [Concomitant]
     Dosage: 5 MG, QD
     Route: 048
     Dates: start: 20100801
  12. OXYGEN [Concomitant]
     Dosage: 10 DF, UNK
  13. LOPRESSOR [Concomitant]
     Dosage: 50 MG, QD
     Route: 048
  14. VICODIN HP [Concomitant]
     Dosage: UNK, PRN
     Route: 048

REACTIONS (4)
  - SUPRAVENTRICULAR EXTRASYSTOLES [None]
  - SINUS TACHYCARDIA [None]
  - SUPRAVENTRICULAR TACHYCARDIA [None]
  - VENTRICULAR EXTRASYSTOLES [None]
